FAERS Safety Report 13472794 (Version 1)
Quarter: 2017Q2

REPORT INFORMATION
  Report Type: Spontaneous
  Country: US (occurrence: US)
  Receive Date: 20170424
  Receipt Date: 20170424
  Transmission Date: 20170830
  Serious: Yes (Other)
  Sender: FDA-Public Use
  Company Number: US-CIPLA LTD.-2016US04680

PATIENT

DRUGS (1)
  1. MEPROBAMATE. [Suspect]
     Active Substance: MEPROBAMATE
     Indication: ANXIETY
     Dosage: UNK
     Route: 065

REACTIONS (3)
  - Syncope [Unknown]
  - Drug ineffective [Unknown]
  - Hypersensitivity [Unknown]
